FAERS Safety Report 16580518 (Version 1)
Quarter: 2019Q3

REPORT INFORMATION
  Report Type: Spontaneous
  Country: JP (occurrence: JP)
  Receive Date: 20190716
  Receipt Date: 20190716
  Transmission Date: 20191004
  Serious: Yes (Death)
  Sender: FDA-Public Use
  Company Number: PHHY2019JP163917

PATIENT
  Age: 70 Year
  Sex: Female

DRUGS (4)
  1. PREDNISOLONE. [Suspect]
     Active Substance: PREDNISOLONE
     Indication: INTERSTITIAL LUNG DISEASE
     Dosage: 25 MG, QD
     Route: 048
     Dates: end: 2006
  2. CYCLOPHOSPHAMIDE. [Suspect]
     Active Substance: CYCLOPHOSPHAMIDE
     Indication: INTERSTITIAL LUNG DISEASE
     Dosage: 50 MG, QD
     Route: 065
     Dates: end: 2005
  3. ABATACEPT [Suspect]
     Active Substance: ABATACEPT
     Indication: POLYARTHRITIS
     Dosage: UNK
     Route: 065
     Dates: start: 201111
  4. IGURATIMOD [Suspect]
     Active Substance: IGURATIMOD
     Indication: POLYARTHRITIS
     Dosage: UNK
     Route: 065
     Dates: start: 201412

REACTIONS (3)
  - Lymphadenopathy [Fatal]
  - Adult T-cell lymphoma/leukaemia [Fatal]
  - Swelling [Fatal]

NARRATIVE: CASE EVENT DATE: 201506
